FAERS Safety Report 5374439-4 (Version None)
Quarter: 2007Q2

REPORT INFORMATION
  Report Type: 
  Country: None (occurrence: None)
  Receive Date: 20070629
  Receipt Date: 20070618
  Transmission Date: 20071010
  Serious: Yes (Other)
  Sender: FDA-Public Use
  Company Number: US-JNJFOC-20070506387

PATIENT
  Sex: Male
  Weight: 79.38 kg

DRUGS (5)
  1. REMICADE [Suspect]
     Route: 042
  2. REMICADE [Suspect]
     Route: 042
  3. REMICADE [Suspect]
     Indication: PSORIATIC ARTHROPATHY
     Route: 042
  4. LEFLUNOMIDE [Concomitant]
     Indication: PSORIATIC ARTHROPATHY
  5. MELOXICAM [Concomitant]
     Indication: PSORIATIC ARTHROPATHY

REACTIONS (4)
  - BACK PAIN [None]
  - HYPOTENSION [None]
  - INFUSION RELATED REACTION [None]
  - LOSS OF CONSCIOUSNESS [None]
